FAERS Safety Report 21990529 (Version 1)
Quarter: 2023Q1

REPORT INFORMATION
  Report Type: Spontaneous
  Country: US (occurrence: None)
  Receive Date: 20230213
  Receipt Date: 20230213
  Transmission Date: 20230417
  Serious: No
  Sender: FDA-Public Use
  Company Number: None

PATIENT
  Age: 69 Year
  Sex: Male
  Weight: 81 kg

DRUGS (5)
  1. FARXIGA [Suspect]
     Active Substance: DAPAGLIFLOZIN PROPANEDIOL
     Indication: Diabetes mellitus
     Dates: start: 20220614, end: 20220706
  2. ASPIRIN [Concomitant]
     Active Substance: ASPIRIN
  3. LOSARTAN [Concomitant]
     Active Substance: LOSARTAN
  4. CARVEDILOL [Concomitant]
     Active Substance: CARVEDILOL
  5. TAMSULOSIN [Concomitant]
     Active Substance: TAMSULOSIN

REACTIONS (3)
  - Urticaria [None]
  - Pruritus [None]
  - Drug hypersensitivity [None]

NARRATIVE: CASE EVENT DATE: 20220629
